FAERS Safety Report 9538914 (Version 1)
Quarter: 2013Q3

REPORT INFORMATION
  Report Type: Spontaneous
  Country: CA (occurrence: CA)
  Receive Date: 20130920
  Receipt Date: 20130920
  Transmission Date: 20140515
  Serious: Yes (Death)
  Sender: FDA-Public Use
  Company Number: CA-JNJFOC-20130910599

PATIENT
  Age: 88 Year
  Sex: Female

DRUGS (2)
  1. RISPERIDONE [Suspect]
     Indication: AFFECTIVE DISORDER
     Route: 065
     Dates: start: 20130716
  2. TRAZODONE [Suspect]
     Indication: PRODUCT USED FOR UNKNOWN INDICATION
     Route: 065

REACTIONS (1)
  - Cardiac failure [Fatal]
